FAERS Safety Report 9030289 (Version 1)
Quarter: 2013Q1

REPORT INFORMATION
  Report Type: Spontaneous
  Country: GB (occurrence: GB)
  Receive Date: 20130122
  Receipt Date: 20130122
  Transmission Date: 20140127
  Serious: Yes (Life-Threatening)
  Sender: FDA-Public Use
  Company Number: PHHY2013GB005391

PATIENT
  Age: 23 Year
  Sex: Female

DRUGS (2)
  1. METHOTREXATE [Suspect]
     Dosage: 15 MG, QW (PRESCRIBED FOR 9 WEEKS)
     Route: 048
     Dates: start: 20121008, end: 20121217
  2. FOLIC ACID [Concomitant]
     Dosage: 5 MG, QW
     Route: 048
     Dates: start: 20121008, end: 20121217

REACTIONS (1)
  - Hyperkalaemia [Recovered/Resolved]
